FAERS Safety Report 21828884 (Version 1)
Quarter: 2023Q1

REPORT INFORMATION
  Report Type: Spontaneous
  Country: US (occurrence: US)
  Receive Date: 20230106
  Receipt Date: 20230106
  Transmission Date: 20230417
  Serious: Yes (Other)
  Sender: FDA-Public Use
  Company Number: US-COOPERSURGICAL, INC.-US-2022CPS001231

PATIENT
  Age: 29 Year
  Sex: Female
  Weight: 96.599 kg

DRUGS (1)
  1. PARAGARD T 380A [Suspect]
     Active Substance: COPPER
     Indication: Contraception
     Dosage: UNK
     Route: 015
     Dates: start: 20171115

REACTIONS (5)
  - Pregnancy with contraceptive device [Unknown]
  - Bacterial vaginosis [Recovered/Resolved]
  - Vulvovaginal mycotic infection [Recovered/Resolved]
  - Device dislocation [Unknown]
  - Drug ineffective [Unknown]

NARRATIVE: CASE EVENT DATE: 20210418
